FAERS Safety Report 8776428 (Version 1)
Quarter: 2012Q4

REPORT INFORMATION
  Report Type: 
  Country: US (occurrence: US)
  Receive Date: 20120908
  Receipt Date: 20120908
  Transmission Date: 20130627
  Serious: Yes (Life-Threatening, Hospitalization)
  Sender: FDA-Public Use
  Company Number: PHEH2012US017309

PATIENT

DRUGS (2)
  1. GILENYA [Suspect]
     Dosage: UNK UKN, UNK
  2. GILENYA [Suspect]
     Dosage: 19 DF, UNK

REACTIONS (1)
  - Overdose [Unknown]
